FAERS Safety Report 5835339-6 (Version None)
Quarter: 2008Q3

REPORT INFORMATION
  Report Type: 
  Country: None (occurrence: None)
  Receive Date: 20080804
  Receipt Date: 20080725
  Transmission Date: 20090109
  Serious: Yes (Life-Threatening)
  Sender: FDA-Public Use
  Company Number: 1000000248

PATIENT
  Sex: Female

DRUGS (1)
  1. INFASURF PRESERVATIVE FREE [Suspect]
     Indication: PROPHYLAXIS
     Dosage: 3.6 ML (1.8 ML, 2 IN 1 D), ENDOTRACHEAL
     Route: 007
     Dates: start: 20080717, end: 20080717

REACTIONS (5)
  - BREATH SOUNDS ABNORMAL [None]
  - CYANOSIS NEONATAL [None]
  - ENDOTRACHEAL INTUBATION COMPLICATION [None]
  - HEART RATE DECREASED [None]
  - OXYGEN SATURATION DECREASED [None]
